FAERS Safety Report 7817171-7 (Version None)
Quarter: 2011Q4

REPORT INFORMATION
  Report Type: 
  Country: None (occurrence: None)
  Receive Date: 20111017
  Receipt Date: 20111017
  Transmission Date: 20120403
  Serious: Yes (Other)
  Sender: FDA-Public Use
  Company Number: None

PATIENT
  Age: 6 Year
  Sex: Male
  Weight: 19.958 kg

DRUGS (1)
  1. SINGULAIR [Suspect]
     Indication: ASTHMA
     Dosage: 4 MG
     Dates: start: 20110215, end: 20110927

REACTIONS (16)
  - FEAR OF DEATH [None]
  - NIGHTMARE [None]
  - IRRITABILITY [None]
  - AGGRESSION [None]
  - ABNORMAL BEHAVIOUR [None]
  - IMPAIRED REASONING [None]
  - RESTLESSNESS [None]
  - PSYCHOMOTOR HYPERACTIVITY [None]
  - INCREASED TENDENCY TO BRUISE [None]
  - INSOMNIA [None]
  - ANXIETY [None]
  - IMPAIRED HEALING [None]
  - SELF ESTEEM DECREASED [None]
  - AGITATION [None]
  - MORBID THOUGHTS [None]
  - FRUSTRATION [None]
